FAERS Safety Report 7409426-5 (Version None)
Quarter: 2011Q2

REPORT INFORMATION
  Report Type: 
  Country: None (occurrence: None)
  Receive Date: 20110412
  Receipt Date: 20110404
  Transmission Date: 20111010
  Serious: Yes (Other)
  Sender: FDA-Public Use
  Company Number: US-PFIZER INC-2011074599

PATIENT

DRUGS (1)
  1. CHILDREN'S DIMETAPP NIGHTTIME COLD AND CONGESTION [Suspect]
     Dosage: UNK
     Route: 065

REACTIONS (2)
  - RASH [None]
  - EYE OEDEMA [None]
